FAERS Safety Report 6972903-5 (Version None)
Quarter: 2010Q3

REPORT INFORMATION
  Report Type: 
  Country: None (occurrence: None)
  Receive Date: 20100909
  Receipt Date: 20100907
  Transmission Date: 20110219
  Serious: Yes (Other)
  Sender: FDA-Public Use
  Company Number: US-PFIZER INC-2010112918

PATIENT
  Sex: Female

DRUGS (3)
  1. DEPO-MEDROL [Suspect]
     Indication: DERMATITIS CONTACT
     Dosage: 80 MG, UNK
  2. ALPRAZOLAM [Suspect]
     Dosage: 0.25 MG, Q 6 HOURS
  3. ALPRAZOLAM [Suspect]
     Dosage: 0.25 MG Q 8 HOURS (TAPERED)

REACTIONS (5)
  - DRUG INEFFECTIVE [None]
  - DYSPNOEA [None]
  - HEART RATE IRREGULAR [None]
  - MOOD ALTERED [None]
  - WITHDRAWAL SYNDROME [None]
